FAERS Safety Report 20745342 (Version 1)
Quarter: 2022Q2

REPORT INFORMATION
  Report Type: Spontaneous
  Country: DE (occurrence: DE)
  Receive Date: 20220425
  Receipt Date: 20220425
  Transmission Date: 20220720
  Serious: Yes (Hospitalization, Other)
  Sender: FDA-Public Use
  Company Number: DE-CELLTRION INC.-2022DE004871

PATIENT

DRUGS (6)
  1. TRASTUZUMAB [Suspect]
     Active Substance: TRASTUZUMAB
     Indication: Adenocarcinoma gastric
     Dosage: 4 MG/KG
     Route: 065
  2. LEUCOVORIN [Suspect]
     Active Substance: LEUCOVORIN
     Indication: Adenocarcinoma gastric
     Dosage: 200 MG/M2, FOR 6 CYCLES
     Route: 065
  3. FLUOROURACIL [Suspect]
     Active Substance: FLUOROURACIL
     Indication: Adenocarcinoma gastric
     Dosage: 2400 MG/M2, FOR 24 HR. FOR 6 CYCLES
     Route: 065
  4. OXALIPLATIN [Suspect]
     Active Substance: OXALIPLATIN
     Indication: Adenocarcinoma gastric
     Dosage: 85 MG/M2, FOR 6 CYCLES
     Route: 065
  5. DOCETAXEL [Suspect]
     Active Substance: DOCETAXEL
     Indication: Adenocarcinoma gastric
     Dosage: 50 MG/M2, 0.5 WEEK FOR 6 CYCLES
     Route: 065
  6. FILGRASTIM [Concomitant]
     Active Substance: FILGRASTIM
     Dosage: ADMINISTERED ON DAYS 4-6
     Route: 058

REACTIONS (7)
  - Tumour lysis syndrome [Unknown]
  - Polyserositis [Recovered/Resolved]
  - Onycholysis [Unknown]
  - Eczema [Unknown]
  - Paronychia [Unknown]
  - Erythema [Unknown]
  - Skin reaction [Unknown]
